FAERS Safety Report 20213151 (Version 1)
Quarter: 2021Q4

REPORT INFORMATION
  Report Type: Spontaneous
  Country: US (occurrence: None)
  Receive Date: 20211221
  Receipt Date: 20211221
  Transmission Date: 20220303
  Serious: Yes (Other)
  Sender: FDA-Public Use
  Company Number: None

PATIENT
  Age: 10 Month
  Sex: Female
  Weight: 59 kg

DRUGS (1)
  1. HEMABATE [Suspect]
     Active Substance: CARBOPROST TROMETHAMINE
     Indication: Postpartum haemorrhage
     Dosage: FREQUENCY : ONCE;?
     Route: 030
     Dates: start: 20211202, end: 20211202

REACTIONS (3)
  - Paraesthesia [None]
  - Post procedural complication [None]
  - Paraesthesia [None]

NARRATIVE: CASE EVENT DATE: 20211202
